FAERS Safety Report 4803702-8 (Version None)
Quarter: 2005Q4

REPORT INFORMATION
  Report Type: 
  Country: None (occurrence: None)
  Receive Date: 20051013
  Receipt Date: 20050922
  Transmission Date: 20060501
  Serious: Yes (Other)
  Sender: FDA-Public Use
  Company Number: USA030332078

PATIENT
  Age: 30 Year
  Sex: Male
  Weight: 62 kg

DRUGS (4)
  1. HUMULIN N [Suspect]
     Indication: DIABETES MELLITUS INSULIN-DEPENDENT
     Dosage: 25 U DAY
  2. ILETIN-PORK NPH INSULIN (INSULIN, ANIMAL) [Suspect]
     Indication: DIABETES MELLITUS
     Dosage: 37 U/DAY
     Dates: start: 19810101, end: 20020101
  3. ILETIN-PORK REGULAR INSULIN (INSULIN, ANIMAL) [Suspect]
     Indication: DIABETES MELLITUS
     Dosage: 5 U DAY
     Dates: start: 19810101, end: 20050101
  4. INSULIN ASPART [Concomitant]

REACTIONS (9)
  - AGITATION [None]
  - BLOOD GLUCOSE DECREASED [None]
  - BLOOD GLUCOSE INCREASED [None]
  - EMOTIONAL DISTRESS [None]
  - GLYCOSYLATED HAEMOGLOBIN INCREASED [None]
  - SCHIZOPHRENIA [None]
  - TESTIS CANCER [None]
  - TOURETTE'S DISORDER [None]
  - WEIGHT DECREASED [None]
